FAERS Safety Report 11500449 (Version 1)
Quarter: 2015Q3

REPORT INFORMATION
  Report Type: Spontaneous
  Country: US (occurrence: US)
  Receive Date: 20150914
  Receipt Date: 20150914
  Transmission Date: 20151125
  Serious: No
  Sender: FDA-Public Use
  Company Number: US-PFIZER INC-2015302148

PATIENT
  Age: 76 Year
  Sex: Male

DRUGS (3)
  1. ADVIL [Suspect]
     Active Substance: IBUPROFEN
     Indication: BACK PAIN
     Dosage: 6 BY MOUTH PER DAY AS RECOMMENDED, 2 IN THE MORNING, 2 FIVE HOURS LATER, AND 2 BEFORE BED
     Dates: start: 201508
  2. SENOKOT-S [Concomitant]
     Active Substance: DOCUSATE SODIUM\SENNOSIDES
     Indication: CONSTIPATION
     Dosage: UNK
  3. OXYCODONE AND ACETAMINOPHEN [Suspect]
     Active Substance: ACETAMINOPHEN\OXYCODONE\OXYCODONE HYDROCHLORIDE
     Indication: BACK PAIN
     Dosage: OXYCODONE/ACETAMINOPHEN 5/325
     Dates: start: 20150903, end: 20150904

REACTIONS (3)
  - Constipation [Not Recovered/Not Resolved]
  - Abdominal discomfort [Unknown]
  - Intentional product misuse [Not Recovered/Not Resolved]

NARRATIVE: CASE EVENT DATE: 201508
